FAERS Safety Report 7812252-6 (Version None)
Quarter: 2011Q4

REPORT INFORMATION
  Report Type: 
  Country: None (occurrence: None)
  Receive Date: 20111011
  Receipt Date: 20110926
  Transmission Date: 20120403
  Serious: Yes (Hospitalization)
  Sender: FDA-Public Use
  Company Number: 2011SP045409

PATIENT
  Age: 48 Year
  Sex: Male

DRUGS (4)
  1. DESLORATADINE [Suspect]
     Indication: RASH MACULO-PAPULAR
     Dosage: PO
     Route: 048
     Dates: start: 20110809, end: 20110819
  2. ATARAX [Suspect]
     Indication: RASH MACULO-PAPULAR
     Dosage: PO
     Route: 048
     Dates: start: 20110809, end: 20110819
  3. FUCIDINE CAP [Suspect]
     Indication: ECZEMA WEEPING
     Dosage: 500 MG; BID; PO
     Route: 048
     Dates: start: 20110809, end: 20110815
  4. NERISONE [Suspect]
     Indication: ECZEMA WEEPING
     Dosage: TOP
     Route: 061
     Dates: start: 20110809, end: 20110819

REACTIONS (7)
  - LEUKOCYTOSIS [None]
  - RASH MACULO-PAPULAR [None]
  - MYELOPROLIFERATIVE DISORDER [None]
  - DYSPNOEA [None]
  - TOXIC SKIN ERUPTION [None]
  - OFF LABEL USE [None]
  - CONDITION AGGRAVATED [None]
